FAERS Safety Report 11482556 (Version 1)
Quarter: 2015Q3

REPORT INFORMATION
  Report Type: Spontaneous
  Country: US (occurrence: US)
  Receive Date: 20150909
  Receipt Date: 20150909
  Transmission Date: 20151125
  Serious: Yes (Hospitalization)
  Sender: FDA-Public Use
  Company Number: US-ASTRAZENECA-2015SE84642

PATIENT
  Sex: Female

DRUGS (14)
  1. EYLEA [Concomitant]
     Active Substance: AFLIBERCEPT
     Indication: DIABETIC RETINAL OEDEMA
     Route: 031
     Dates: start: 20150210
  2. HCTZ [Concomitant]
     Active Substance: HYDROCHLOROTHIAZIDE
  3. GLIPIZIDE. [Concomitant]
     Active Substance: GLIPIZIDE
  4. CLONIDINE. [Concomitant]
     Active Substance: CLONIDINE
  5. LANTUS [Concomitant]
     Active Substance: INSULIN GLARGINE
  6. VITAMINE C [Concomitant]
  7. WOMEN^S MULTI [Concomitant]
  8. TYLENOL [Concomitant]
     Active Substance: ACETAMINOPHEN
  9. PROAIR HFA [Concomitant]
     Active Substance: ALBUTEROL SULFATE
  10. BRILINTA [Suspect]
     Active Substance: TICAGRELOR
     Indication: CORONARY ARTERY DISEASE
     Route: 048
  11. BENADRYL [Concomitant]
     Active Substance: DIPHENHYDRAMINE HYDROCHLORIDE
  12. LOSARTAN POTASSIUM. [Concomitant]
     Active Substance: LOSARTAN POTASSIUM
  13. VERAPAMIL [Concomitant]
     Active Substance: VERAPAMIL HYDROCHLORIDE
  14. ONGLYZA [Concomitant]
     Active Substance: SAXAGLIPTIN HYDROCHLORIDE

REACTIONS (1)
  - Drug hypersensitivity [Recovered/Resolved]

NARRATIVE: CASE EVENT DATE: 20150728
